FAERS Safety Report 5096773-8 (Version None)
Quarter: 2006Q3

REPORT INFORMATION
  Report Type: 
  Country: None (occurrence: None)
  Receive Date: 20060831
  Receipt Date: 20060818
  Transmission Date: 20061208
  Serious: Yes (Hospitalization, Other)
  Sender: FDA-Public Use
  Company Number: 2005161541

PATIENT
  Age: 82 Year
  Sex: Male
  Weight: 76.2043 kg

DRUGS (3)
  1. CELEBREX [Suspect]
     Indication: PAIN
  2. BEXTRA [Suspect]
     Indication: PAIN
     Dosage: 20 MG (20 MG, 1 IN 1 D), ORAL
     Route: 048
     Dates: start: 20020101
  3. VIOXX [Suspect]
     Indication: DRUG USE FOR UNKNOWN INDICATION

REACTIONS (20)
  - ARTHRALGIA [None]
  - ATRIOVENTRICULAR BLOCK FIRST DEGREE [None]
  - BURSITIS [None]
  - CARDIOVASCULAR DISORDER [None]
  - CAROTID ARTERY STENOSIS [None]
  - DEEP VEIN THROMBOSIS [None]
  - DRUG INEFFECTIVE [None]
  - DYSPNOEA [None]
  - ERYTHEMA [None]
  - FALL [None]
  - MUSCULOSKELETAL CHEST PAIN [None]
  - MYOCARDIAL ISCHAEMIA [None]
  - OEDEMA PERIPHERAL [None]
  - OSTEOARTHRITIS [None]
  - PAIN IN EXTREMITY [None]
  - PLEURITIC PAIN [None]
  - PNEUMONIA [None]
  - THROMBOSIS [None]
  - THROMBOTIC STROKE [None]
  - WOUND [None]
